FAERS Safety Report 6738863-7 (Version None)
Quarter: 2010Q2

REPORT INFORMATION
  Report Type: 
  Country: None (occurrence: None)
  Receive Date: 20100520
  Receipt Date: 20100507
  Transmission Date: 20101027
  Serious: Yes (Other)
  Sender: FDA-Public Use
  Company Number: 1000013871

PATIENT
  Age: 36 Year
  Sex: Male

DRUGS (2)
  1. ESCITALOPRAM OXALATE [Suspect]
     Indication: ANXIETY DISORDER
     Dosage: (20 MG), ORAL; (30 MG)
     Route: 048
  2. ESCITALOPRAM OXALATE [Suspect]
     Indication: ANXIETY DISORDER
     Dosage: (60 MG), ORAL
     Route: 048

REACTIONS (9)
  - CHEST PAIN [None]
  - DIPLOPIA [None]
  - DRUG INEFFECTIVE [None]
  - FRONTAL LOBE EPILEPSY [None]
  - LOSS OF LIBIDO [None]
  - MUSCLE SPASMS [None]
  - PARAESTHESIA [None]
  - RASH [None]
  - UNEVALUABLE EVENT [None]
